FAERS Safety Report 6094836-1 (Version None)
Quarter: 2009Q1

REPORT INFORMATION
  Report Type: 
  Country: None (occurrence: None)
  Receive Date: 20090223
  Receipt Date: 20080428
  Transmission Date: 20090719
  Serious: Yes (Death)
  Sender: FDA-Public Use
  Company Number: 080429-0000308

PATIENT
  Age: 45 Year
  Sex: Male

DRUGS (2)
  1. DESOXYN [Suspect]
     Indication: DRUG USE FOR UNKNOWN INDICATION
  2. CLOZAPINE [Suspect]
     Indication: PSYCHOTIC DISORDER
     Dosage: 75 MG;PO ; 12.5 MG ; 25 MG ; 50 MG; 100 MG
     Route: 048
     Dates: start: 20071201

REACTIONS (1)
  - OVERDOSE [None]
